FAERS Safety Report 7402747-1 (Version None)
Quarter: 2011Q2

REPORT INFORMATION
  Report Type: 
  Country: None (occurrence: None)
  Receive Date: 20110408
  Receipt Date: 20110328
  Transmission Date: 20111010
  Serious: Yes (Other)
  Sender: FDA-Public Use
  Company Number: US-ROCHE-768162

PATIENT
  Sex: Female
  Weight: 49.9 kg

DRUGS (8)
  1. MYCOPHENOLATE MOFETIL (NON-ROCHE) [Suspect]
     Dosage: OTHER INDICATION: PROPHYLAXIS, KIDNEY TRANSPLANT REJECTION
     Route: 048
     Dates: start: 19970101
  2. JANUVIA [Concomitant]
  3. PROPRANOLOL [Concomitant]
  4. ASPIRIN [Concomitant]
  5. LANTUS [Concomitant]
     Dosage: DRUG REPORTED: 40 LANTUS
  6. CELLCEPT [Suspect]
     Dosage: DOSE AND STRENGTH: 200MG/ML; OTHER INDICATION: PROPHYLAXIS,PANCREAS TRANSPLANT REJECTION
     Route: 048
     Dates: start: 19970101
  7. PLAVIX [Concomitant]
  8. PROGRAF [Concomitant]

REACTIONS (3)
  - PAIN [None]
  - CEREBROVASCULAR ACCIDENT [None]
  - PRODUCT RECONSTITUTION ISSUE [None]
